FAERS Safety Report 7681061-3 (Version None)
Quarter: 2011Q3

REPORT INFORMATION
  Report Type: 
  Country: None (occurrence: None)
  Receive Date: 20110812
  Receipt Date: 20110802
  Transmission Date: 20111222
  Serious: Yes (Hospitalization)
  Sender: FDA-Public Use
  Company Number: GB-SANOFI-AVENTIS-2011SA049725

PATIENT
  Age: 70 Year
  Sex: Male

DRUGS (5)
  1. PERINDOPRIL [Concomitant]
     Route: 065
  2. WARFARIN SODIUM [Concomitant]
     Route: 065
  3. SIMVASTATIN [Concomitant]
     Route: 065
  4. DRONEDARONE HCL [Suspect]
     Indication: ATRIAL FIBRILLATION
     Route: 048
     Dates: start: 20110520, end: 20110701
  5. AMLODIPINE [Concomitant]
     Route: 065

REACTIONS (6)
  - ABDOMINAL PAIN [None]
  - HAEMATURIA [None]
  - BLOOD CREATININE INCREASED [None]
  - CHOLECYSTITIS [None]
  - URINARY TRACT OBSTRUCTION [None]
  - ANURIA [None]
